FAERS Safety Report 7620396-7 (Version None)
Quarter: 2011Q3

REPORT INFORMATION
  Report Type: 
  Country: None (occurrence: None)
  Receive Date: 20110718
  Receipt Date: 20110718
  Transmission Date: 20111222
  Serious: Yes (Other)
  Sender: FDA-Public Use
  Company Number: None

PATIENT
  Age: 61 Year
  Sex: Male
  Weight: 99.79 kg

DRUGS (1)
  1. CHANTIX [Suspect]
     Indication: SMOKING CESSATION THERAPY
     Dosage: .05NG
     Route: 048
     Dates: start: 20101209, end: 20110620

REACTIONS (7)
  - DEPRESSION [None]
  - BLOOD PRESSURE INCREASED [None]
  - DISORIENTATION [None]
  - ANGER [None]
  - IRRITABILITY [None]
  - AMNESIA [None]
  - NIGHTMARE [None]
